FAERS Safety Report 19086808 (Version 4)
Quarter: 2021Q2

REPORT INFORMATION
  Report Type: Report from Study
  Country: None (occurrence: GB)
  Receive Date: 20210402
  Receipt Date: 20210414
  Transmission Date: 20210717
  Serious: Yes (Hospitalization)
  Sender: FDA-Public Use
  Company Number: GB-ABBVIE-21K-167-3840062-00

PATIENT
  Age: 69 Year
  Sex: Male

DRUGS (3)
  1. DUODOPA [Suspect]
     Active Substance: CARBIDOPA\LEVODOPA
     Indication: PARKINSON^S DISEASE
     Dosage: CONTINUOUS RATE 4.0MLS/HR, EXTRA DOSE 1.5MLS, MORNING DOSE 8.4MLS
     Route: 050
     Dates: start: 2018, end: 20210327
  2. SINEMET [Concomitant]
     Active Substance: CARBIDOPA\LEVODOPA
     Indication: PRODUCT USED FOR UNKNOWN INDICATION
     Dosage: FREQUENCY: 2 HOURLY FROM 6AM TILL 10PM.
  3. DUODOPA [Suspect]
     Active Substance: CARBIDOPA\LEVODOPA
     Dosage: CONTINUOUS RATE 4.0MLS/HR, EXTRA DOSE 1.5MLS, MORNING DOSE 8.4MLS
     Route: 050
     Dates: start: 20210330

REACTIONS (13)
  - Gait disturbance [Recovering/Resolving]
  - Mobility decreased [Not Recovered/Not Resolved]
  - General physical health deterioration [Unknown]
  - Dyspnoea [Not Recovered/Not Resolved]
  - Device issue [Not Recovered/Not Resolved]
  - Muscle spasms [Not Recovered/Not Resolved]
  - Fall [Recovering/Resolving]
  - Dyskinesia [Recovering/Resolving]
  - Pain [Not Recovered/Not Resolved]
  - Agitation [Recovered/Resolved]
  - Device breakage [Recovering/Resolving]
  - Device dislocation [Not Recovered/Not Resolved]
  - On and off phenomenon [Recovered/Resolved]

NARRATIVE: CASE EVENT DATE: 2021
